FAERS Safety Report 6143775-6 (Version None)
Quarter: 2009Q2

REPORT INFORMATION
  Report Type: 
  Country: None (occurrence: None)
  Receive Date: 20090403
  Receipt Date: 20090324
  Transmission Date: 20091009
  Serious: Yes (Hospitalization, Other)
  Sender: FDA-Public Use
  Company Number: PHNU2002DE04159

PATIENT
  Sex: Female
  Weight: 64 kg

DRUGS (7)
  1. DIOVAN [Suspect]
     Indication: HYPERTENSION
     Dosage: 80 MG, QD
     Route: 048
     Dates: start: 19970801, end: 20020301
  2. VIOXX [Suspect]
     Dosage: 1 DF, QD
     Dates: start: 20020227, end: 20020308
  3. DOLORMIN [Concomitant]
     Dosage: 200 MG/D PRN
     Dates: start: 20010101, end: 20020301
  4. INSULIN PROTAPHAN HM (GE) [Concomitant]
     Indication: DIABETES MELLITUS
     Dosage: 20-45 IU/D
     Route: 058
     Dates: start: 19960101
  5. ACTRAPID PENFILL [Concomitant]
     Indication: DIABETES MELLITUS
     Route: 058
     Dates: start: 19960101
  6. MAGNESIUM SULFATE [Concomitant]
     Dosage: 1 DF, QD
     Route: 048
     Dates: start: 20020201, end: 20020301
  7. IBUPROFEN [Concomitant]
     Dosage: PRN

REACTIONS (27)
  - ANAEMIA HAEMOLYTIC AUTOIMMUNE [None]
  - ANTIBODY TEST POSITIVE [None]
  - ASTHENIA [None]
  - BLOOD BILIRUBIN ABNORMAL [None]
  - BLOOD COUNT ABNORMAL [None]
  - BLOOD LACTATE DEHYDROGENASE INCREASED [None]
  - C-REACTIVE PROTEIN ABNORMAL [None]
  - CARDIOMEGALY [None]
  - COLITIS [None]
  - COUGH [None]
  - CYTOMEGALOVIRUS ANTIBODY [None]
  - EPSTEIN-BARR VIRUS ANTIBODY POSITIVE [None]
  - GASTRITIS [None]
  - GASTRITIS EROSIVE [None]
  - HAEMOGLOBIN DECREASED [None]
  - HAPTOGLOBIN ABNORMAL [None]
  - HEPATITIS [None]
  - HERPES SIMPLEX SEROLOGY POSITIVE [None]
  - LYMPHADENOPATHY [None]
  - MEAN CELL VOLUME ABNORMAL [None]
  - RECTAL POLYP [None]
  - RED BLOOD CELL SEDIMENTATION RATE [None]
  - RHINITIS [None]
  - UPPER RESPIRATORY TRACT INFECTION [None]
  - UTERINE LEIOMYOMA [None]
  - VARICELLA ZOSTER VIRUS SEROLOGY POSITIVE [None]
  - WHITE BLOOD CELL COUNT INCREASED [None]
